FAERS Safety Report 6263208-9 (Version None)
Quarter: 2009Q3

REPORT INFORMATION
  Report Type: 
  Country: None (occurrence: None)
  Receive Date: 20090710
  Receipt Date: 20090702
  Transmission Date: 20100115
  Serious: Yes (Other)
  Sender: FDA-Public Use
  Company Number: US-PFIZER INC-2004111494

PATIENT
  Sex: Female

DRUGS (5)
  1. PROVERA [Suspect]
     Indication: HORMONE REPLACEMENT THERAPY
     Route: 048
  2. PREMPRO [Suspect]
     Indication: HORMONE REPLACEMENT THERAPY
     Dosage: 0.625/ 2.5 MG
     Route: 065
     Dates: start: 19910101, end: 20010101
  3. PREMPRO [Suspect]
     Indication: MENOPAUSE
  4. ACTIVELLA [Suspect]
     Indication: MENOPAUSE
     Dosage: 1/ 0.5 MG
     Dates: start: 20010101, end: 20020101
  5. ESTRACE [Suspect]
     Indication: HORMONE REPLACEMENT THERAPY
     Dosage: 0.01 %
     Route: 067

REACTIONS (1)
  - BREAST CANCER FEMALE [None]
